FAERS Safety Report 17019088 (Version 1)
Quarter: 2019Q4

REPORT INFORMATION
  Report Type: Report from Study
  Country: CN (occurrence: CN)
  Receive Date: 20191112
  Receipt Date: 20191112
  Transmission Date: 20200122
  Serious: Yes (Other)
  Sender: FDA-Public Use
  Company Number: CN-ROCHE-2459341

PATIENT

DRUGS (5)
  1. TEGAFUR [Suspect]
     Active Substance: TEGAFUR
     Indication: GASTRIC CANCER
     Dosage: DAYS 1-14 EVERY 3 WEEKS
     Route: 048
  2. OXALIPLATIN. [Suspect]
     Active Substance: OXALIPLATIN
     Indication: GASTRIC CANCER
     Dosage: ON DAY 1
     Route: 041
  3. GIMERACIL [Suspect]
     Active Substance: GIMERACIL
     Indication: GASTRIC CANCER
     Dosage: ON DAYS 1-14 EVERY 3 WEEKS
     Route: 048
  4. CAPECITABINE. [Suspect]
     Active Substance: CAPECITABINE
     Indication: GASTRIC CANCER
     Dosage: ON DAYS 1-14 EVERY 3 WEEKS
     Route: 048
  5. OTERACIL POTASSIUM [Suspect]
     Active Substance: OTERACIL POTASSIUM
     Indication: GASTRIC CANCER
     Dosage: ON DAYS 1-14 EVERY 3 WEEKS
     Route: 048

REACTIONS (13)
  - Renal impairment [Unknown]
  - Stomatitis [Unknown]
  - Neutrophil count decreased [Unknown]
  - Decreased appetite [Unknown]
  - Fatigue [Unknown]
  - Palmar-plantar erythrodysaesthesia syndrome [Unknown]
  - Hepatic function abnormal [Unknown]
  - Neurotoxicity [Unknown]
  - White blood cell count decreased [Unknown]
  - Nausea [Unknown]
  - Haemoglobin decreased [Unknown]
  - Vomiting [Unknown]
  - Platelet count decreased [Unknown]
